FAERS Safety Report 4535710-9 (Version None)
Quarter: 2004Q4

REPORT INFORMATION
  Report Type: 
  Country: None (occurrence: None)
  Receive Date: 20041223
  Receipt Date: 20031216
  Transmission Date: 20050328
  Serious: No
  Sender: FDA-Public Use
  Company Number: US-GLAXOSMITHKLINE-A0444061A

PATIENT
  Age: 63 Year
  Sex: Female

DRUGS (6)
  1. FLONASE [Suspect]
     Indication: ILL-DEFINED DISORDER
     Dosage: 1PUFF TWICE PER DAY
     Route: 045
  2. BACITRACIN [Concomitant]
     Route: 061
  3. ZYRTEC [Concomitant]
     Dosage: 10MG PER DAY
     Route: 065
  4. LIDEX [Concomitant]
  5. CEPHALEXIN [Concomitant]
     Dosage: 500MG PER DAY
     Route: 065
  6. GUAIFENESIN [Concomitant]
     Dosage: 1200MG TWICE PER DAY
     Route: 065

REACTIONS (1)
  - TINNITUS [None]
